FAERS Safety Report 7689307-2 (Version None)
Quarter: 2011Q3

REPORT INFORMATION
  Report Type: 
  Country: None (occurrence: None)
  Receive Date: 20110817
  Receipt Date: 20110808
  Transmission Date: 20111222
  Serious: Yes (Other)
  Sender: FDA-Public Use
  Company Number: US-BAYER-201038659NA

PATIENT
  Sex: Female
  Weight: 104.31 kg

DRUGS (3)
  1. YASMIN [Suspect]
     Dosage: UNK
     Route: 048
     Dates: start: 20050101, end: 20060101
  2. MULTI-VITAMIN [Concomitant]
  3. IBUPROFEN [Concomitant]

REACTIONS (4)
  - CHEST PAIN [None]
  - THROMBOSIS [None]
  - OEDEMA [None]
  - DEEP VEIN THROMBOSIS [None]
